FAERS Safety Report 8878909 (Version 1)
Quarter: 2012Q4

REPORT INFORMATION
  Report Type: 
  Country: US (occurrence: US)
  Receive Date: 20121026
  Receipt Date: 20121026
  Transmission Date: 20130627
  Serious: No
  Sender: FDA-Public Use
  Company Number: US-PFIZER INC-2012268527

PATIENT
  Age: 71 Year
  Sex: Female
  Weight: 76.64 kg

DRUGS (6)
  1. LYRICA [Suspect]
     Indication: FIBROMYALGIA
     Dosage: 50 mg, 2x/day
     Route: 048
     Dates: start: 201210
  2. HYDROCODONE [Concomitant]
     Indication: BACK PAIN
     Dosage: 500 mg, daily
  3. HYDROCODONE [Concomitant]
     Indication: ARTHRALGIA
  4. TRAZODONE [Concomitant]
     Indication: ANXIETY
     Dosage: 150 mg, daily
  5. ESTRADIOL [Concomitant]
     Indication: HORMONE REPLACEMENT THERAPY
     Dosage: 1 mg, daily
  6. SIMVASTATIN [Concomitant]
     Indication: BLOOD CHOLESTEROL ABNORMAL
     Dosage: 40 mg, daily

REACTIONS (1)
  - Drug ineffective [Unknown]
